FAERS Safety Report 4850460-7 (Version None)
Quarter: 2005Q4

REPORT INFORMATION
  Report Type: 
  Country: None (occurrence: None)
  Receive Date: 20051207
  Receipt Date: 20051207
  Transmission Date: 20060501
  Serious: No
  Sender: FDA-Public Use
  Company Number: None

PATIENT
  Age: 78 Year
  Sex: Male
  Weight: 100 kg

DRUGS (12)
  1. ENTACAPONE 200MG [Suspect]
     Indication: PARKINSON'S DISEASE
     Dosage: 200MG TID
     Dates: start: 20050201, end: 20050301
  2. CARBIDOPA AND LEVODOPA [Concomitant]
  3. DIGOXIN [Concomitant]
  4. ASPIRIN [Concomitant]
  5. PLAVIX [Concomitant]
  6. ALBUTEROL [Concomitant]
  7. SIMVASTATIN [Concomitant]
  8. MECLIZINE [Concomitant]
  9. OMEPRAZOLE [Concomitant]
  10. FLUNISOLIDE [Concomitant]
  11. IRON [Concomitant]
  12. METOPROLOL [Concomitant]

REACTIONS (2)
  - AGITATION [None]
  - ANXIETY [None]
